FAERS Safety Report 6863055-0 (Version None)
Quarter: 2010Q2

REPORT INFORMATION
  Report Type: 
  Country: None (occurrence: None)
  Receive Date: 20100528
  Receipt Date: 20100324
  Transmission Date: 20101027
  Serious: No
  Sender: FDA-Public Use
  Company Number: 009366

PATIENT
  Sex: Female

DRUGS (3)
  1. LACOSAMIDE [Suspect]
     Dosage: 50 MG BID, 150 MG, 50 MG TABLET IN THE MORNING AND TWO 50 MG TABLETS AT NIGHT
     Dates: start: 20100301, end: 20100301
  2. LACOSAMIDE [Suspect]
     Dosage: 50 MG BID, 150 MG, 50 MG TABLET IN THE MORNING AND TWO 50 MG TABLETS AT NIGHT
     Dates: start: 20100301
  3. BEECHAMS [Concomitant]

REACTIONS (4)
  - DIARRHOEA [None]
  - FLATULENCE [None]
  - HEADACHE [None]
  - VIRAL INFECTION [None]
